FAERS Safety Report 7739540-6 (Version None)
Quarter: 2011Q3

REPORT INFORMATION
  Report Type: 
  Country: None (occurrence: None)
  Receive Date: 20110909
  Receipt Date: 20110907
  Transmission Date: 20111222
  Serious: Yes (Hospitalization, Other)
  Sender: FDA-Public Use
  Company Number: US-PFIZER INC-2011210847

PATIENT
  Sex: Female

DRUGS (1)
  1. XANAX [Suspect]
     Dosage: CUTTING 0.25 MG

REACTIONS (6)
  - SEDATION [None]
  - THYROID FUNCTION TEST NORMAL [None]
  - WITHDRAWAL SYNDROME [None]
  - CONVULSION [None]
  - GAIT DISTURBANCE [None]
  - NASAL CONGESTION [None]
